FAERS Safety Report 6073825-7 (Version None)
Quarter: 2009Q1

REPORT INFORMATION
  Report Type: 
  Country: None (occurrence: None)
  Receive Date: 20090209
  Receipt Date: 20090209
  Transmission Date: 20090719
  Serious: Yes (Disabling, Other)
  Sender: FDA-Public Use
  Company Number: None

PATIENT
  Sex: Female
  Weight: 76.2043 kg

DRUGS (3)
  1. LEVAQUIN [Suspect]
     Indication: INFECTION
     Dates: start: 20081227, end: 20090109
  2. SPLINT FOR REST [Concomitant]
  3. DAYTIME SPLINT [Concomitant]

REACTIONS (3)
  - MOVEMENT DISORDER [None]
  - TENDON RUPTURE [None]
  - TENDONITIS [None]
